FAERS Safety Report 9105024 (Version 2)
Quarter: 2013Q1

REPORT INFORMATION
  Report Type: Spontaneous
  Country: VE (occurrence: VE)
  Receive Date: 20130220
  Receipt Date: 20130304
  Transmission Date: 20140127
  Serious: Yes (Other)
  Sender: FDA-Public Use
  Company Number: VE-PFIZER INC-2013062644

PATIENT
  Age: 52 Year
  Sex: Female

DRUGS (5)
  1. CADUET [Suspect]
     Indication: HYPERTENSION
     Dosage: AMLODIPINE BESILATE 5 MG/ATORVASTATIN CALCIUM 20 MG, ONCE DAILY
     Route: 048
     Dates: start: 201211, end: 20121207
  2. CADUET [Suspect]
     Indication: HYPERCHOLESTEROLAEMIA
  3. CARVEDILOL [Concomitant]
     Indication: HYPERTENSION
     Dosage: 40 MG, 1X/DAY
     Route: 048
  4. ESOMEPRAZOLE [Concomitant]
     Indication: OESOPHAGITIS
     Dosage: 40 MG, 1X/DAY (EVERY 24 HOURS)
     Route: 048
  5. ASPIRINA [Concomitant]
     Indication: PROPHYLAXIS
     Dosage: 81 MG, 1X/DAY
     Route: 048

REACTIONS (2)
  - Pancreatitis acute [Recovered/Resolved]
  - Euphoric mood [Recovered/Resolved]
